FAERS Safety Report 4642329-8 (Version None)
Quarter: 2005Q2

REPORT INFORMATION
  Report Type: 
  Country: None (occurrence: None)
  Receive Date: 20050421
  Receipt Date: 20050421
  Transmission Date: 20051028
  Serious: Yes (Life-Threatening, Hospitalization, Disabling)
  Sender: FDA-Public Use
  Company Number: None

PATIENT
  Age: 50 Year
  Sex: Male
  Weight: 88.4514 kg

DRUGS (8)
  1. AMBIEN [Suspect]
     Dosage: 10 MG  2 X PER DAY   ORAL
     Route: 048
     Dates: start: 20020513, end: 20020611
  2. VERAPAMIL [Concomitant]
  3. VIAGRA [Concomitant]
  4. LIPITOR [Concomitant]
  5. ZOLOFT [Concomitant]
  6. NEXIUM [Concomitant]
  7. ASPIRIN [Concomitant]
  8. IBUPROFEN [Concomitant]

REACTIONS (7)
  - HYPOAESTHESIA [None]
  - PANIC ATTACK [None]
  - RESTLESS LEGS SYNDROME [None]
  - SLEEP APNOEA SYNDROME [None]
  - SOMNOLENCE [None]
  - TRANSIENT ISCHAEMIC ATTACK [None]
  - URINARY TRACT DISORDER [None]
